FAERS Safety Report 8384671-3 (Version None)
Quarter: 2012Q2

REPORT INFORMATION
  Report Type: 
  Country: None (occurrence: None)
  Receive Date: 20120524
  Receipt Date: 20120516
  Transmission Date: 20120825
  Serious: Yes (Hospitalization)
  Sender: FDA-Public Use
  Company Number: CA-ELI_LILLY_AND_COMPANY-CA201204003504

PATIENT
  Age: 58 Year
  Sex: Female

DRUGS (6)
  1. EFFIENT [Suspect]
     Indication: ANGIOPLASTY
     Dosage: 60 MG, SINGLE
     Route: 048
     Dates: start: 20111025, end: 20111025
  2. PERINDOPRIL ERBUMINE [Concomitant]
     Dosage: 4 MG, QD
     Route: 048
  3. BISOPROLOL FUMARATE [Concomitant]
     Dosage: 5 MG, QD
     Route: 048
  4. ASPIRIN [Concomitant]
     Dosage: 80 MG, QD
     Route: 048
  5. LIPITOR [Concomitant]
     Dosage: 40 MG, QD
     Route: 048
  6. PANTOPRAZOLE SODIUM [Concomitant]
     Dosage: 40 MG, QD
     Route: 048

REACTIONS (2)
  - CATHETER SITE HAEMORRHAGE [None]
  - MEDICATION ERROR [None]
